FAERS Safety Report 4723877-9 (Version None)
Quarter: 2005Q3

REPORT INFORMATION
  Report Type: 
  Country: None (occurrence: None)
  Receive Date: 20050721
  Receipt Date: 20050705
  Transmission Date: 20060218
  Serious: Yes (Other)
  Sender: FDA-Public Use
  Company Number: USA050699706

PATIENT
  Sex: Female

DRUGS (1)
  1. FORTEO [Suspect]
     Dates: start: 20050301, end: 20050101

REACTIONS (4)
  - DRUG HYPERSENSITIVITY [None]
  - EYE SWELLING [None]
  - PHARYNGEAL OEDEMA [None]
  - THROAT TIGHTNESS [None]
